FAERS Safety Report 4946968-6 (Version None)
Quarter: 2006Q1

REPORT INFORMATION
  Report Type: 
  Country: None (occurrence: None)
  Receive Date: 20060317
  Receipt Date: 20060308
  Transmission Date: 20060701
  Serious: Yes (Hospitalization, Other)
  Sender: FDA-Public Use
  Company Number: CA-JNJFOC-20060302113

PATIENT
  Sex: Male
  Weight: 88 kg

DRUGS (10)
  1. REMICADE [Suspect]
     Route: 042
  2. REMICADE [Suspect]
     Indication: ANKYLOSING SPONDYLITIS
     Route: 042
  3. CALCIUM 500 + D [Concomitant]
     Route: 048
  4. CALCIUM 500 + D [Concomitant]
     Route: 048
  5. CALCIUM 500 + D [Concomitant]
     Route: 048
  6. CALCIUM 500 + D [Concomitant]
     Route: 048
  7. CALCIUM 500 + D [Concomitant]
     Indication: NUTRITIONAL SUPPORT
     Route: 048
  8. SUPEUDOL [Concomitant]
     Indication: PAIN
     Route: 048
  9. NEXIUM [Concomitant]
     Route: 048
  10. NOVOGESIC [Concomitant]
     Indication: PAIN
     Route: 048

REACTIONS (1)
  - GASTROENTERITIS [None]
